FAERS Safety Report 5889497-8 (Version None)
Quarter: 2008Q3

REPORT INFORMATION
  Report Type: 
  Country: None (occurrence: None)
  Receive Date: 20080919
  Receipt Date: 20080908
  Transmission Date: 20090109
  Serious: Yes (Hospitalization, Other)
  Sender: FDA-Public Use
  Company Number: US-ELI_LILLY_AND_COMPANY-US200808000403

PATIENT
  Sex: Female
  Weight: 65.76 kg

DRUGS (13)
  1. GEMZAR [Suspect]
     Indication: BREAST CANCER METASTATIC
     Dosage: 2200 MG, OTHER
     Route: 042
     Dates: start: 20080709, end: 20080709
  2. XANAX [Concomitant]
     Dosage: UNK, UNK
     Route: 048
     Dates: start: 20070113
  3. AMITRIPTYLINE HCL [Concomitant]
     Dosage: UNK, UNK
  4. ACTONEL [Concomitant]
     Route: 048
     Dates: start: 20080313
  5. METOPROLOL TARTRATE [Concomitant]
     Route: 048
     Dates: start: 20080313
  6. COMPAZINE [Concomitant]
     Route: 048
     Dates: start: 20080320
  7. DARVOCET [Concomitant]
     Route: 048
     Dates: start: 20080613
  8. ZYRTEC [Concomitant]
     Route: 048
     Dates: start: 20080515
  9. HERBAL PREPARATION [Concomitant]
     Route: 048
  10. SENOKOT [Concomitant]
     Indication: BOWEL MOVEMENT IRREGULARITY
     Route: 048
     Dates: start: 20080403
  11. ZOMETA [Concomitant]
     Route: 042
     Dates: start: 20080709
  12. ALOXI [Concomitant]
     Route: 042
     Dates: start: 20080709
  13. LACTULOSE [Concomitant]
     Indication: BOWEL MOVEMENT IRREGULARITY

REACTIONS (4)
  - ALANINE AMINOTRANSFERASE INCREASED [None]
  - ASPARTATE AMINOTRANSFERASE INCREASED [None]
  - DEHYDRATION [None]
  - FATIGUE [None]
